FAERS Safety Report 22678698 (Version 10)
Quarter: 2023Q4

REPORT INFORMATION
  Report Type: Spontaneous
  Country: RO (occurrence: RO)
  Receive Date: 20230706
  Receipt Date: 20231130
  Transmission Date: 20240110
  Serious: Yes (Death, Other)
  Sender: FDA-Public Use
  Company Number: RO-CELLTRION HEALTHCARE HUNGARY KFT-2023RO012537

PATIENT
  Age: 75 Year
  Sex: Female

DRUGS (12)
  1. TRASTUZUMAB [Suspect]
     Active Substance: TRASTUZUMAB
     Indication: HER2 positive breast cancer
     Dosage: UNK, QW
     Route: 037
     Dates: start: 2011
  2. DOCETAXEL [Suspect]
     Active Substance: DOCETAXEL\DOCETAXEL ANHYDROUS
     Indication: Breast cancer metastatic
     Dosage: UNK
     Route: 065
     Dates: start: 2011
  3. DOCETAXEL [Suspect]
     Active Substance: DOCETAXEL\DOCETAXEL ANHYDROUS
     Indication: Metastases to liver
     Dosage: UNK
     Route: 065
     Dates: start: 2009, end: 2011
  4. CAPECITABINE [Suspect]
     Active Substance: CAPECITABINE
     Indication: Breast cancer metastatic
     Dosage: UNK
     Route: 065
     Dates: start: 2011
  5. CAPECITABINE [Suspect]
     Active Substance: CAPECITABINE
     Indication: Metastases to liver
     Dosage: UNK
     Route: 065
     Dates: start: 2009, end: 2011
  6. PACLITAXEL [Concomitant]
     Active Substance: PACLITAXEL
     Indication: Breast cancer
     Dosage: ONCE WEEKLY, THERAPY DURATION: 3.5 YEARS
     Route: 065
  7. PACLITAXEL [Concomitant]
     Active Substance: PACLITAXEL
     Indication: Breast cancer stage II
  8. PACLITAXEL [Concomitant]
     Active Substance: PACLITAXEL
     Indication: Metastases to bone
  9. LETROZOLE [Concomitant]
     Active Substance: LETROZOLE
     Indication: Breast cancer
     Dosage: THERAPY DURATION: 3.5 YEARS
     Route: 065
  10. LETROZOLE [Concomitant]
     Active Substance: LETROZOLE
     Indication: Breast cancer stage II
  11. LETROZOLE [Concomitant]
     Active Substance: LETROZOLE
     Indication: HER2 positive breast cancer
  12. LETROZOLE [Concomitant]
     Active Substance: LETROZOLE
     Indication: Metastases to bone

REACTIONS (10)
  - Death [Fatal]
  - Metastases to central nervous system [Unknown]
  - Neuromuscular toxicity [Recovered/Resolved]
  - Disease progression [Recovering/Resolving]
  - Hemiparesis [Recovered/Resolved]
  - Metastases to bone [Unknown]
  - Generalised tonic-clonic seizure [Recovered/Resolved]
  - Paraparesis [Recovered/Resolved]
  - Intentional product use issue [Unknown]
  - Off label use [Unknown]

NARRATIVE: CASE EVENT DATE: 20110101
